FAERS Safety Report 11395549 (Version 1)
Quarter: 2015Q3

REPORT INFORMATION
  Report Type: Spontaneous
  Country: US (occurrence: None)
  Receive Date: 20150818
  Receipt Date: 20150818
  Transmission Date: 20151125
  Serious: Yes (Hospitalization, Disabling)
  Sender: FDA-Public Use
  Company Number: None

PATIENT
  Age: 56 Year
  Sex: Female
  Weight: 58.97 kg

DRUGS (8)
  1. PEPTO-BISMOL [Suspect]
     Active Substance: BISMUTH SUBSALICYLATE\CALCIUM CARBONATE
     Indication: GASTROOESOPHAGEAL REFLUX DISEASE
     Dosage: LIIVE OR DOSSAGE ON CAP ?BEDTIME?MOUTH
     Route: 048
     Dates: start: 20150522, end: 20150603
  2. GEMFIBROZIL. [Concomitant]
     Active Substance: GEMFIBROZIL
  3. FOLIC ACTO [Concomitant]
  4. VALIUM [Concomitant]
     Active Substance: DIAZEPAM
  5. PRILOSEC [Concomitant]
     Active Substance: OMEPRAZOLE MAGNESIUM
  6. BYSTOLIC [Concomitant]
     Active Substance: NEBIVOLOL HYDROCHLORIDE
  7. DICYCLOMINE [Concomitant]
     Active Substance: DICYCLOMINE HYDROCHLORIDE
  8. VALIUM + DICYCLOMINE [Concomitant]

REACTIONS (3)
  - Abdominal pain upper [None]
  - Impaired work ability [None]
  - Product contamination physical [None]

NARRATIVE: CASE EVENT DATE: 20150526
